FAERS Safety Report 10865839 (Version 1)
Quarter: 2015Q1

REPORT INFORMATION
  Report Type: Spontaneous
  Country: GB (occurrence: GB)
  Receive Date: 20150224
  Receipt Date: 20150224
  Transmission Date: 20150721
  Serious: Yes (Other)
  Sender: FDA-Public Use
  Company Number: GB-UCBSA-2015005136

PATIENT
  Sex: Female

DRUGS (3)
  1. NEUPRO [Suspect]
     Active Substance: ROTIGOTINE
     Indication: PRODUCT USED FOR UNKNOWN INDICATION
     Dosage: UNK
  2. AMANTADINE [Concomitant]
     Active Substance: AMANTADINE
     Indication: PRODUCT USED FOR UNKNOWN INDICATION
     Dosage: UNK
  3. L DOPA [Concomitant]
     Active Substance: LEVODOPA

REACTIONS (8)
  - Surgery [Unknown]
  - Dementia [Unknown]
  - Anxiety [Unknown]
  - Confusion postoperative [Unknown]
  - Dystonia [Unknown]
  - Arthropathy [Unknown]
  - Cognitive disorder [Unknown]
  - Dyskinesia [Unknown]
